FAERS Safety Report 15989120 (Version 1)
Quarter: 2019Q1

REPORT INFORMATION
  Report Type: Spontaneous
  Country: DE (occurrence: DE)
  Receive Date: 20190221
  Receipt Date: 20190221
  Transmission Date: 20190418
  Serious: Yes (Hospitalization)
  Sender: FDA-Public Use
  Company Number: DE-ACCORD-108537

PATIENT
  Age: 7 Year
  Sex: Male

DRUGS (6)
  1. CISPLATIN. [Suspect]
     Active Substance: CISPLATIN
     Indication: NEOPLASM MALIGNANT
     Dosage: RECEIVED TOTAL OF SIX CYCLES IN 2011 AND 2013 WITH FLUOROURACIL AND CETUXIMAB
     Route: 065
     Dates: start: 2011
  2. CETUXIMAB. [Suspect]
     Active Substance: CETUXIMAB
     Indication: NEOPLASM MALIGNANT
     Dosage: RECEIVED TOTAL OF SIX CYCLES IN 2011 AND 2013 WITH CISPLATIN AND CETUXIMAB
     Route: 065
     Dates: start: 2011
  3. CETUXIMAB. [Suspect]
     Active Substance: CETUXIMAB
     Indication: NEOPLASM MALIGNANT
     Dosage: RECEIVED FOUR COURSES WITH CISPLATIN FROM SEPTEMBER 2015 ON DAYS 1, 8 AND 15 OF THE CYCLE
     Route: 065
     Dates: start: 201509, end: 201511
  4. CISPLATIN. [Suspect]
     Active Substance: CISPLATIN
     Indication: PRODUCT USED FOR UNKNOWN INDICATION
     Dosage: RECEIVED FOUR COURSES WITH CETUXIMAB FROM SEPTEMBER 2015
     Route: 065
     Dates: start: 201509, end: 201511
  5. NIVOLUMAB [Suspect]
     Active Substance: NIVOLUMAB
     Indication: PRODUCT USED FOR UNKNOWN INDICATION
     Route: 065
     Dates: start: 201610
  6. FLUOROURACIL. [Suspect]
     Active Substance: FLUOROURACIL
     Indication: NEOPLASM MALIGNANT
     Dosage: RECEIVED TOTAL OF SIX CYCLES IN 2011 AND 2013 WITH CETUXIMAB AND CISPLATIN
     Route: 065
     Dates: start: 2011

REACTIONS (4)
  - Staphylococcal infection [Recovered/Resolved]
  - Pneumonia [Unknown]
  - Chest pain [Recovered/Resolved]
  - Bone abscess [Recovered/Resolved]
